FAERS Safety Report 5021096-2 (Version None)
Quarter: 2006Q2

REPORT INFORMATION
  Report Type: 
  Country: None (occurrence: None)
  Receive Date: 20060607
  Receipt Date: 20060607
  Transmission Date: 20061013
  Serious: Yes (Hospitalization)
  Sender: FDA-Public Use
  Company Number: None

PATIENT
  Sex: Male
  Weight: 78.4 kg

DRUGS (9)
  1. FLUOROURACIL [Suspect]
     Indication: NEOPLASM
     Dosage: 4427.18 MG
     Dates: start: 20060515, end: 20060601
  2. CISPLATIN [Suspect]
     Dosage: 252 MG
     Dates: start: 20060515, end: 20060601
  3. ASPIRIN [Concomitant]
  4. ATENOLOL [Concomitant]
  5. CARDIAC STUDY DRUG (PLACEBO VS RANOLAZINE) [Concomitant]
  6. COMPAZINE [Concomitant]
  7. LIPITOR [Concomitant]
  8. NEXIUM [Concomitant]
  9. SLNTG [Concomitant]

REACTIONS (9)
  - BACTERIAL INFECTION [None]
  - CATHETER SITE RELATED REACTION [None]
  - CHILLS [None]
  - DIARRHOEA [None]
  - POLYURIA [None]
  - PYREXIA [None]
  - TENDERNESS [None]
  - VOMITING [None]
  - WHITE BLOOD CELLS URINE POSITIVE [None]
